FAERS Safety Report 5523185-2 (Version None)
Quarter: 2007Q4

REPORT INFORMATION
  Report Type: 
  Country: None (occurrence: None)
  Receive Date: 20071116
  Receipt Date: 20071116
  Transmission Date: 20080405
  Serious: No
  Sender: FDA-Public Use
  Company Number: None

PATIENT
  Sex: Male
  Weight: 86.1834 kg

DRUGS (1)
  1. DILANTIN [Suspect]
     Indication: EPILEPSY
     Dosage: 200 MG TWICE A DAY PO
     Route: 048
     Dates: start: 19981022, end: 20070612

REACTIONS (21)
  - ARTHRALGIA [None]
  - AUTOIMMUNE DISORDER [None]
  - BLOOD CHOLESTEROL INCREASED [None]
  - CHEST PAIN [None]
  - CONVULSION [None]
  - DRY EYE [None]
  - ERYTHEMA OF EYELID [None]
  - HYPERTENSION [None]
  - HYPOACUSIS [None]
  - INSOMNIA [None]
  - LOSS OF CONSCIOUSNESS [None]
  - LUNG DISORDER [None]
  - MOUTH ULCERATION [None]
  - PAIN [None]
  - PAIN IN EXTREMITY [None]
  - PHARYNGOLARYNGEAL PAIN [None]
  - POLYNEUROPATHY [None]
  - PYREXIA [None]
  - RASH [None]
  - TINNITUS [None]
  - URINARY INCONTINENCE [None]
